FAERS Safety Report 9614076 (Version 4)
Quarter: 2015Q3

REPORT INFORMATION
  Report Type: Report from Study
  Country: CA (occurrence: CA)
  Receive Date: 20131011
  Receipt Date: 20150814
  Transmission Date: 20151125
  Serious: Yes (Other)
  Sender: FDA-Public Use
  Company Number: CA-ROCHE-1287103

PATIENT
  Sex: Male
  Weight: 106.6 kg

DRUGS (5)
  1. ACTEMRA [Suspect]
     Active Substance: TOCILIZUMAB
     Indication: RHEUMATOID ARTHRITIS
     Dosage: DOSE INTERRUPTED
     Route: 042
     Dates: start: 20120301
  2. CLONAZEPAM. [Concomitant]
     Active Substance: CLONAZEPAM
  3. METHOTREXATE [Concomitant]
     Active Substance: METHOTREXATE
  4. EFFEXOR [Concomitant]
     Active Substance: VENLAFAXINE HYDROCHLORIDE
  5. ACTEMRA [Suspect]
     Active Substance: TOCILIZUMAB
     Dosage: RESTARTED
     Route: 042

REACTIONS (3)
  - Carpal tunnel syndrome [Unknown]
  - Nasal congestion [Unknown]
  - Thermal burn [Not Recovered/Not Resolved]

NARRATIVE: CASE EVENT DATE: 2013
